FAERS Safety Report 8677726 (Version 2)
Quarter: 2013Q4

REPORT INFORMATION
  Report Type: Spontaneous
  Country: FR (occurrence: FR)
  Receive Date: 20120723
  Receipt Date: 20131106
  Transmission Date: 20140711
  Serious: Yes (Death, Other)
  Sender: FDA-Public Use
  Company Number: FR-009507513-1207FRA003460

PATIENT
  Age: 67 Year
  Sex: Female

DRUGS (3)
  1. VICTRELIS [Suspect]
     Indication: PRODUCT USED FOR UNKNOWN INDICATION
  2. VIRAFERONPEG [Suspect]
     Indication: PRODUCT USED FOR UNKNOWN INDICATION
  3. REBETOL [Suspect]
     Indication: PRODUCT USED FOR UNKNOWN INDICATION

REACTIONS (1)
  - Cardiac arrest [Fatal]
